FAERS Safety Report 6912555-3 (Version None)
Quarter: 2010Q3

REPORT INFORMATION
  Report Type: 
  Country: None (occurrence: None)
  Receive Date: 20100806
  Receipt Date: 20080801
  Transmission Date: 20110219
  Serious: No
  Sender: FDA-Public Use
  Company Number: US-PFIZER INC-2008065234

PATIENT
  Age: 62 Year
  Sex: Female

DRUGS (2)
  1. DETROL [Suspect]
  2. VESICARE [Concomitant]

REACTIONS (3)
  - CHEST PAIN [None]
  - DRY THROAT [None]
  - DYSPEPSIA [None]
